FAERS Safety Report 10354337 (Version 2)
Quarter: 2014Q3

REPORT INFORMATION
  Report Type: Spontaneous
  Country: US (occurrence: US)
  Receive Date: 20140731
  Receipt Date: 20140731
  Transmission Date: 20150326
  Serious: Yes (Hospitalization, Disabling, Other)
  Sender: FDA-Public Use
  Company Number: US-ASTELLAS-2014US006206

PATIENT
  Sex: Female

DRUGS (2)
  1. RAPAMUNE [Concomitant]
     Active Substance: SIROLIMUS
     Indication: PRODUCT USED FOR UNKNOWN INDICATION
     Dosage: UNK UNK, UNKNOWN FREQ.
     Route: 065
  2. PROGRAF [Suspect]
     Active Substance: TACROLIMUS\TACROLIMUS ANHYDROUS
     Indication: HEART TRANSPLANT
     Dosage: 8 MG (1 MG TABLET AND 5 MG TABLET), TWICE DAILY
     Route: 048
     Dates: start: 2011

REACTIONS (10)
  - Catheterisation cardiac [Unknown]
  - Malaise [Unknown]
  - Dyspnoea [Unknown]
  - Heart transplant rejection [Unknown]
  - Diabetes mellitus [Recovering/Resolving]
  - Biopsy heart [Unknown]
  - Immunosuppressant drug level increased [Unknown]
  - Blood pressure increased [Unknown]
  - Chest pain [Unknown]
  - Heart transplant rejection [Unknown]

NARRATIVE: CASE EVENT DATE: 2012
